FAERS Safety Report 7819997-2 (Version None)
Quarter: 2011Q4

REPORT INFORMATION
  Report Type: 
  Country: None (occurrence: None)
  Receive Date: 20111018
  Receipt Date: 20111013
  Transmission Date: 20120403
  Serious: Yes (Disabling, Other)
  Sender: FDA-Public Use
  Company Number: JP-PFIZER INC-2011218869

PATIENT
  Age: 81 Year
  Sex: Female
  Weight: 40 kg

DRUGS (10)
  1. LYRICA [Suspect]
     Indication: OSTEOARTHRITIS
     Dosage: 75 MG
     Route: 048
     Dates: start: 20110825, end: 20110825
  2. LANSOPRAZOLE [Concomitant]
  3. LEVOTHYROXINE SODIUM [Concomitant]
     Indication: POSTOPERATIVE CARE
  4. DEPAS [Concomitant]
  5. VOLTAREN [Concomitant]
     Indication: ARTHRALGIA
     Dosage: 1 TABLET, 2X/DAY
     Dates: start: 20100708
  6. GLAKAY [Concomitant]
  7. MOBIC [Concomitant]
     Indication: ARTHRALGIA
     Dosage: 1 TABLET, 2X/DAY
     Dates: start: 20100708
  8. MARZULENE ES [Concomitant]
     Indication: ARTHRALGIA
     Dosage: 1 TABLET, 3X/DAY
     Dates: start: 20100708
  9. HYALURONATE SODIUM [Concomitant]
     Indication: ARTHRALGIA
     Dosage: UNK
     Route: 014
  10. NORVASC [Concomitant]

REACTIONS (2)
  - ASTHENIA [None]
  - ASTHMA [None]
